FAERS Safety Report 4502270-8 (Version None)
Quarter: 2004Q4

REPORT INFORMATION
  Report Type: 
  Country: None (occurrence: None)
  Receive Date: 20041109
  Receipt Date: 20041027
  Transmission Date: 20050328
  Serious: Yes (Hospitalization)
  Sender: FDA-Public Use
  Company Number: RS004755-J

PATIENT
  Age: 76 Year
  Sex: Female
  Weight: 65.55 kg

DRUGS (14)
  1. RABEPRAZOLE SODIUM [Suspect]
     Indication: GASTRIC ULCER
     Dosage: 10 MG, 1 IN  1D, ORAL
     Route: 048
     Dates: start: 20040922, end: 20041006
  2. PREDNISOLONE [Concomitant]
  3. AMOXAPINE [Concomitant]
  4. DOGMATYL (SULPIRIDE) [Concomitant]
  5. AMOBAN (ZOPICLONE) [Concomitant]
  6. PROMAC (POLAPREZINC) [Concomitant]
  7. CEFACLOR [Concomitant]
  8. STOMACHICS AND DIGESTIVES (DIGESTIVES, INCL ENZYMES) [Concomitant]
  9. PURSENNID (SENNA LEAF) [Concomitant]
  10. BACTRIM [Concomitant]
  11. HALOPERIDOL [Concomitant]
  12. LEVOFLOXACIN [Concomitant]
  13. ASPIRIN [Concomitant]
  14. AMOXAPINE [Concomitant]

REACTIONS (2)
  - HAEMOLYTIC ANAEMIA [None]
  - PLATELET COUNT DECREASED [None]
